FAERS Safety Report 10483923 (Version 3)
Quarter: 2014Q4

REPORT INFORMATION
  Report Type: Spontaneous
  Country: JP (occurrence: JP)
  Receive Date: 20140930
  Receipt Date: 20141009
  Transmission Date: 20150528
  Serious: Yes (Life-Threatening, Hospitalization)
  Sender: FDA-Public Use
  Company Number: JP-EISAI MEDICAL RESEARCH-E7389-05344-SPO-JP

PATIENT
  Sex: Female

DRUGS (5)
  1. ZOMETA [Concomitant]
     Active Substance: ZOLEDRONIC ACID
     Indication: PRODUCT USED FOR UNKNOWN INDICATION
     Dosage: 4 MG
     Route: 048
  2. HALAVEN [Suspect]
     Active Substance: ERIBULIN MESYLATE
     Indication: BREAST CANCER RECURRENT
     Route: 041
     Dates: start: 20131101, end: 20140502
  3. HALAVEN [Suspect]
     Active Substance: ERIBULIN MESYLATE
     Indication: METASTASES TO LYMPH NODES
  4. HALAVEN [Suspect]
     Active Substance: ERIBULIN MESYLATE
     Indication: METASTASES TO LIVER
  5. HALAVEN [Suspect]
     Active Substance: ERIBULIN MESYLATE
     Indication: METASTASES TO LUNG

REACTIONS (4)
  - Malignant neoplasm progression [None]
  - Breast cancer [None]
  - Vocal cord paralysis [Not Recovered/Not Resolved]
  - VIth nerve paralysis [Not Recovered/Not Resolved]

NARRATIVE: CASE EVENT DATE: 20140613
